FAERS Safety Report 14560913 (Version 1)
Quarter: 2018Q1

REPORT INFORMATION
  Report Type: Spontaneous
  Country: JP (occurrence: JP)
  Receive Date: 20180222
  Receipt Date: 20180222
  Transmission Date: 20180509
  Serious: Yes (Death, Other)
  Sender: FDA-Public Use
  Company Number: JP-CIPLA LTD.-2018JP05464

PATIENT

DRUGS (3)
  1. CISPLATIN. [Suspect]
     Active Substance: CISPLATIN
     Indication: MALIGNANT NEOPLASM OF AMPULLA OF VATER
     Dosage: 60 MG/MG2, DAYS 1 ON 28 DAY CYCLE
     Route: 065
  2. IRINOTECAN [Suspect]
     Active Substance: IRINOTECAN
     Indication: MALIGNANT NEOPLASM OF AMPULLA OF VATER
     Dosage: 60 MG/M2, DAYS 1, 8 AND 15 ON 28 DAY CYCLE
     Route: 065
  3. MITOTANE [Suspect]
     Active Substance: MITOTANE
     Indication: HYPERCORTICOIDISM
     Dosage: 3 G, 1 DAY
     Route: 065

REACTIONS (3)
  - Metastases to liver [Fatal]
  - Haematotoxicity [Unknown]
  - Hepatic failure [Fatal]
